FAERS Safety Report 14187896 (Version 5)
Quarter: 2019Q1

REPORT INFORMATION
  Report Type: Spontaneous
  Country: IT (occurrence: IT)
  Receive Date: 20171114
  Receipt Date: 20190328
  Transmission Date: 20190417
  Serious: Yes (Other)
  Sender: FDA-Public Use
  Company Number: IT-PFIZER INC-2017485420

PATIENT
  Age: 35 Month
  Sex: Female

DRUGS (2)
  1. VINCRISTINE SULFATE. [Suspect]
     Active Substance: VINCRISTINE SULFATE
     Indication: MEDULLOBLASTOMA
     Dosage: UNK
  2. CARBOPLATIN. [Suspect]
     Active Substance: CARBOPLATIN
     Indication: MEDULLOBLASTOMA
     Dosage: UNK

REACTIONS (3)
  - Renal impairment [Recovered/Resolved]
  - Pancytopenia [Recovered/Resolved]
  - Sepsis [Recovered/Resolved]
